FAERS Safety Report 14245659 (Version 1)
Quarter: 2017Q4

REPORT INFORMATION
  Report Type: Spontaneous
  Country: EG (occurrence: EG)
  Receive Date: 20171204
  Receipt Date: 20171204
  Transmission Date: 20180321
  Serious: Yes (Other)
  Sender: FDA-Public Use
  Company Number: EG-MACLEODS PHARMACEUTICALS US LTD-MAC2017006421

PATIENT

DRUGS (2)
  1. LOVENOX [Concomitant]
     Active Substance: ENOXAPARIN SODIUM
     Indication: DEEP VEIN THROMBOSIS
     Dosage: UNK
     Route: 065
  2. LEVOFLOXACIN. [Suspect]
     Active Substance: LEVOFLOXACIN
     Indication: PRODUCT USED FOR UNKNOWN INDICATION
     Dosage: UNK
     Route: 065

REACTIONS (9)
  - Complex regional pain syndrome [Recovering/Resolving]
  - Peripheral coldness [Recovering/Resolving]
  - Paresis [Recovering/Resolving]
  - Peripheral swelling [Recovering/Resolving]
  - Pain in extremity [Recovering/Resolving]
  - Skin discolouration [Recovering/Resolving]
  - Head titubation [Recovering/Resolving]
  - Neurotoxicity [Recovering/Resolving]
  - Allodynia [Recovering/Resolving]
